FAERS Safety Report 7555975-9 (Version None)
Quarter: 2011Q2

REPORT INFORMATION
  Report Type: 
  Country: None (occurrence: None)
  Receive Date: 20110619
  Receipt Date: 20110607
  Transmission Date: 20111010
  Serious: Yes (Other)
  Sender: FDA-Public Use
  Company Number: US-ELI_LILLY_AND_COMPANY-US201006004630

PATIENT
  Sex: Female

DRUGS (4)
  1. PLAVIX [Concomitant]
     Dosage: UNK
     Dates: start: 20091201
  2. FORTEO [Suspect]
     Dosage: 20 UG, DAILY (1/D)
  3. FORTEO [Suspect]
     Indication: OSTEOPOROSIS
     Dosage: 20 UG, DAILY (1/D)
     Dates: start: 20090820
  4. FORTEO [Suspect]
     Dosage: 20 UG, DAILY (1/D)

REACTIONS (6)
  - HYPERTENSION [None]
  - INJECTION SITE HAEMATOMA [None]
  - CONTUSION [None]
  - ARTHRITIS [None]
  - MUSCULOSKELETAL PAIN [None]
  - SWELLING [None]
